FAERS Safety Report 22341183 (Version 2)
Quarter: 2023Q2

REPORT INFORMATION
  Report Type: Report from Study
  Country: US (occurrence: US)
  Receive Date: 20230518
  Receipt Date: 20230526
  Transmission Date: 20230721
  Serious: Yes (Other)
  Sender: FDA-Public Use
  Company Number: US-TAIHOP-2023-002354

PATIENT
  Age: 66 Year
  Sex: Female

DRUGS (1)
  1. LONSURF [Suspect]
     Active Substance: TIPIRACIL HYDROCHLORIDE\TRIFLURIDINE
     Indication: Rectal cancer
     Dosage: CYCLE 1
     Route: 048
     Dates: start: 202303

REACTIONS (13)
  - Acute kidney injury [Unknown]
  - Haemorrhage [Unknown]
  - Chills [Unknown]
  - Fatigue [Unknown]
  - Gingival pain [Unknown]
  - Decreased appetite [Unknown]
  - Alopecia [Unknown]
  - Gastrointestinal pain [Unknown]
  - Headache [Unknown]
  - Pruritus [Unknown]
  - Dry skin [Unknown]
  - Epistaxis [Unknown]
  - Diarrhoea [Unknown]

NARRATIVE: CASE EVENT DATE: 20230501
